FAERS Safety Report 4541652-5 (Version None)
Quarter: 2004Q4

REPORT INFORMATION
  Report Type: 
  Country: None (occurrence: None)
  Receive Date: 20041227
  Receipt Date: 20041214
  Transmission Date: 20050328
  Serious: Yes (Hospitalization)
  Sender: FDA-Public Use
  Company Number: 2004PK02126

PATIENT
  Age: 35 Year
  Sex: Female
  Weight: 55 kg

DRUGS (1)
  1. NAROPIN [Suspect]
     Indication: ANAESTHESIA
     Dosage: 50 ML ONCE IF
     Dates: start: 20040818, end: 20040818

REACTIONS (7)
  - BIPOLAR I DISORDER [None]
  - DRUG TOXICITY [None]
  - ENURESIS [None]
  - GRAND MAL CONVULSION [None]
  - MEDICATION ERROR [None]
  - STUPOR [None]
  - TONGUE BITING [None]
